FAERS Safety Report 17496363 (Version 1)
Quarter: 2020Q1

REPORT INFORMATION
  Report Type: Spontaneous
  Country: DE (occurrence: DE)
  Receive Date: 20200304
  Receipt Date: 20200304
  Transmission Date: 20200409
  Serious: Yes (Death, Other)
  Sender: FDA-Public Use
  Company Number: DE-MYLANLABS-2020M1022309

PATIENT
  Sex: Female

DRUGS (1)
  1. FENTANYL. [Suspect]
     Active Substance: FENTANYL
     Indication: PRODUCT USED FOR UNKNOWN INDICATION
     Dosage: UNK(75 G/H)
     Route: 062

REACTIONS (5)
  - Pulmonary oedema [Fatal]
  - Completed suicide [Fatal]
  - Intentional overdose [Fatal]
  - Brain oedema [Fatal]
  - Product use in unapproved indication [Fatal]
